FAERS Safety Report 7578376-6 (Version None)
Quarter: 2011Q2

REPORT INFORMATION
  Report Type: 
  Country: None (occurrence: None)
  Receive Date: 20110628
  Receipt Date: 20110617
  Transmission Date: 20111010
  Serious: Yes (Other)
  Sender: FDA-Public Use
  Company Number: US-AMGEN-USACT2011031464

PATIENT
  Age: 50 Year
  Sex: Female

DRUGS (5)
  1. FILGRASTIM [Suspect]
     Indication: BREAST CANCER
  2. BEVACIZUMAB [Concomitant]
     Indication: BREAST CANCER
     Dosage: UNK UNK, BLINDED
     Route: 042
     Dates: start: 20110112
  3. DOXORUBICIN HCL [Concomitant]
     Indication: BREAST CANCER
     Dosage: 60 MG/M2, UNK
     Route: 042
     Dates: start: 20110112
  4. CYCLOPHOSPHAMIDE [Concomitant]
     Indication: BREAST CANCER
     Dosage: 600 MG/M2, UNK
     Route: 042
     Dates: start: 20110112
  5. PACLITAXEL [Concomitant]
     Indication: BREAST CANCER
     Dosage: 80 MG/M2, UNK
     Route: 042
     Dates: start: 20110112

REACTIONS (1)
  - ANGINA PECTORIS [None]
